FAERS Safety Report 4497787-9 (Version None)
Quarter: 2004Q4

REPORT INFORMATION
  Report Type: 
  Country: None (occurrence: None)
  Receive Date: 20041104
  Receipt Date: 20041019
  Transmission Date: 20050328
  Serious: Yes (Disabling)
  Sender: FDA-Public Use
  Company Number: 2004EU001777

PATIENT
  Age: 13 Year
  Sex: Male
  Weight: 45 kg

DRUGS (3)
  1. TACROLIMUS [Suspect]
     Indication: RENAL TRANSPLANT
     Dosage: 2.00 MG, BID, ORAL
     Route: 048
     Dates: start: 20020320
  2. AZATHIOPRINE [Suspect]
     Dosage: 37.50 MG, UID/QD, ORAL
     Route: 048
     Dates: start: 19990428
  3. CORTANCYL (PREDNISONE) [Suspect]
     Dosage: 5.00 MG, UNKNOWN./D, ORAL
     Route: 048
     Dates: start: 19990428

REACTIONS (12)
  - AMYOTROPHY [None]
  - ARTHRALGIA [None]
  - BLOOD CREATINE PHOSPHOKINASE INCREASED [None]
  - BONE DEVELOPMENT ABNORMAL [None]
  - FATIGUE [None]
  - GROWTH RETARDATION [None]
  - INFLUENZA LIKE ILLNESS [None]
  - KYPHOSCOLIOSIS [None]
  - MALNUTRITION [None]
  - MYALGIA [None]
  - OSTEOMALACIA [None]
  - OSTEOPOROSIS [None]
